FAERS Safety Report 17188846 (Version 2)
Quarter: 2020Q1

REPORT INFORMATION
  Report Type: Spontaneous
  Country: US (occurrence: US)
  Receive Date: 20191222
  Receipt Date: 20200324
  Transmission Date: 20200409
  Serious: No
  Sender: FDA-Public Use
  Company Number: US-ACORDA-ACO_162552_2019

PATIENT
  Age: 64 Year
  Sex: Female
  Weight: 56.24 kg

DRUGS (5)
  1. XANAX [Concomitant]
     Active Substance: ALPRAZOLAM
     Indication: PRODUCT USED FOR UNKNOWN INDICATION
     Dosage: 0.25 MILLIGRAM, QD
     Route: 048
  2. SINEMET [Concomitant]
     Active Substance: CARBIDOPA\LEVODOPA
     Indication: PRODUCT USED FOR UNKNOWN INDICATION
     Dosage: AS DIRECTED
     Route: 048
  3. INBRIJA [Suspect]
     Active Substance: LEVODOPA
     Indication: ON AND OFF PHENOMENON
  4. INBRIJA [Suspect]
     Active Substance: LEVODOPA
     Indication: PARKINSON^S DISEASE
     Dosage: 1 DOSAGE FORM , PRN
     Dates: start: 20191122
  5. AZILECT [Concomitant]
     Active Substance: RASAGILINE MESYLATE
     Indication: PRODUCT USED FOR UNKNOWN INDICATION
     Dosage: 0.5 TABLET, QD
     Route: 048

REACTIONS (20)
  - Drug ineffective [Unknown]
  - Tremor [Not Recovered/Not Resolved]
  - Sensation of foreign body [Unknown]
  - Dry eye [Unknown]
  - Condition aggravated [Not Recovered/Not Resolved]
  - Adverse drug reaction [Unknown]
  - Product residue present [Unknown]
  - Dyskinesia [Unknown]
  - Oropharyngeal pain [Unknown]
  - Cough [Unknown]
  - Extra dose administered [Unknown]
  - Nausea [Not Recovered/Not Resolved]
  - Lip dry [Unknown]
  - Dizziness [Not Recovered/Not Resolved]
  - Chapped lips [Unknown]
  - Thirst [Unknown]
  - Pollakiuria [Unknown]
  - Pain in extremity [Unknown]
  - Device issue [Unknown]
  - Incorrect dose administered [Unknown]

NARRATIVE: CASE EVENT DATE: 201912
